FAERS Safety Report 16319169 (Version 1)
Quarter: 2019Q2

REPORT INFORMATION
  Report Type: Spontaneous
  Country: US (occurrence: US)
  Receive Date: 20190516
  Receipt Date: 20190516
  Transmission Date: 20190711
  Serious: No
  Sender: FDA-Public Use
  Company Number: US-MYLANLABS-2019M1042465

PATIENT
  Age: 58 Year
  Sex: Female
  Weight: 69 kg

DRUGS (3)
  1. PROGESTERONE. [Concomitant]
     Active Substance: PROGESTERONE
     Dosage: UNK
  2. ESTRADIOL TRANSDERMAL SYSTEM [Suspect]
     Active Substance: ESTRADIOL
     Indication: HORMONE REPLACEMENT THERAPY
     Dosage: 0.1 MILLIGRAM, QD
     Route: 062
     Dates: start: 20190428, end: 20190429
  3. SIMVASTATIN. [Concomitant]
     Active Substance: SIMVASTATIN
     Indication: BLOOD CHOLESTEROL INCREASED
     Dosage: UNK

REACTIONS (2)
  - Wrong technique in product usage process [Not Recovered/Not Resolved]
  - Product adhesion issue [Unknown]

NARRATIVE: CASE EVENT DATE: 20190428
